FAERS Safety Report 6126859-8 (Version None)
Quarter: 2009Q1

REPORT INFORMATION
  Report Type: 
  Country: None (occurrence: None)
  Receive Date: 20090320
  Receipt Date: 20090316
  Transmission Date: 20090719
  Serious: Yes (Death, Hospitalization)
  Sender: FDA-Public Use
  Company Number: US-GENENTECH-279251

PATIENT
  Sex: Male
  Weight: 102 kg

DRUGS (2)
  1. HERCEPTIN [Suspect]
     Indication: BREAST CANCER
     Dosage: 6 MG/KG, Q3W
     Route: 042
     Dates: start: 20090311
  2. GEMCITABINE [Concomitant]
     Indication: BREAST CANCER
     Dosage: 1000 G/M2, UNK
     Dates: start: 20090311

REACTIONS (3)
  - DEATH [None]
  - LABORATORY TEST ABNORMAL [None]
  - MALAISE [None]
